FAERS Safety Report 4389134-8 (Version None)
Quarter: 2004Q3

REPORT INFORMATION
  Report Type: 
  Country: None (occurrence: None)
  Receive Date: 20040702
  Receipt Date: 20030716
  Transmission Date: 20050211
  Serious: Yes (Other)
  Sender: FDA-Public Use
  Company Number: US-GLAXOSMITHKLINE-A0417856A

PATIENT
  Age: 40 Year
  Sex: Male
  Weight: 118.2 kg

DRUGS (2)
  1. PARNATE [Suspect]
     Indication: ANXIETY
     Dosage: 60MG PER DAY
     Route: 048
  2. ZESTORETIC [Concomitant]
     Indication: HYPERTENSION

REACTIONS (2)
  - ANXIETY [None]
  - DRUG WITHDRAWAL SYNDROME [None]
